FAERS Safety Report 21385423 (Version 1)
Quarter: 2022Q3

REPORT INFORMATION
  Report Type: Spontaneous
  Country: US (occurrence: US)
  Receive Date: 20220928
  Receipt Date: 20220928
  Transmission Date: 20221026
  Serious: No
  Sender: FDA-Public Use
  Company Number: US-PFIZER INC-202201187752

PATIENT
  Age: 78 Year

DRUGS (1)
  1. PAXLOVID [Suspect]
     Active Substance: NIRMATRELVIR\RITONAVIR
     Indication: COVID-19 treatment
     Dosage: UNK

REACTIONS (8)
  - Agitation [Unknown]
  - Flushing [Unknown]
  - Chest pain [Unknown]
  - Nausea [Unknown]
  - Body temperature increased [Unknown]
  - Cough [Unknown]
  - Dysuria [Unknown]
  - Rhinorrhoea [Unknown]
